FAERS Safety Report 7660626-9 (Version None)
Quarter: 2011Q3

REPORT INFORMATION
  Report Type: 
  Country: None (occurrence: None)
  Receive Date: 20110805
  Receipt Date: 20101122
  Transmission Date: 20111222
  Serious: No
  Sender: FDA-Public Use
  Company Number: US-ABBOTT-10P-163-0686938-00

PATIENT
  Sex: Male
  Weight: 76.272 kg

DRUGS (19)
  1. NIASPAN [Suspect]
     Dates: start: 20080901, end: 20080901
  2. VINEGAR [Concomitant]
     Indication: PRODUCT USED FOR UNKNOWN INDICATION
     Dosage: 1 TBSP A DAY
  3. VIT D3 [Concomitant]
     Indication: PRODUCT USED FOR UNKNOWN INDICATION
  4. MVI FOR MEN [Concomitant]
     Indication: PRODUCT USED FOR UNKNOWN INDICATION
  5. ASPIRIN [Concomitant]
     Indication: PRODUCT USED FOR UNKNOWN INDICATION
  6. CALCITONIN NASAL SPRAY [Concomitant]
     Indication: PRODUCT USED FOR UNKNOWN INDICATION
     Route: 045
     Dates: start: 20101104
  7. METAMUCIL-2 [Concomitant]
     Indication: PRODUCT USED FOR UNKNOWN INDICATION
     Dosage: 2 TABLESPOON
  8. NIASPAN [Suspect]
     Dates: start: 20080901, end: 20100801
  9. NIASPAN [Suspect]
     Dates: start: 20101122
  10. CALCIUM ACETATE [Concomitant]
     Indication: PRODUCT USED FOR UNKNOWN INDICATION
  11. TAVIST [Concomitant]
     Indication: PRODUCT USED FOR UNKNOWN INDICATION
  12. GLUCOSAMINE W/METHYLSULFONYLMETHANE [Concomitant]
     Indication: PRODUCT USED FOR UNKNOWN INDICATION
  13. CLARITIN [Concomitant]
     Indication: PRODUCT USED FOR UNKNOWN INDICATION
  14. NIASPAN [Suspect]
     Indication: PRODUCT USED FOR UNKNOWN INDICATION
     Dates: start: 20080501, end: 20080701
  15. NIASPAN [Suspect]
     Dates: start: 20100801, end: 20101122
  16. VIT C [Concomitant]
     Indication: PRODUCT USED FOR UNKNOWN INDICATION
  17. MELATONIN [Concomitant]
     Indication: PRODUCT USED FOR UNKNOWN INDICATION
     Dosage: SLEEP
  18. MAGNESIUM [Concomitant]
     Indication: PRODUCT USED FOR UNKNOWN INDICATION
  19. HANDFUL OF ALMONDS [Concomitant]
     Indication: PRODUCT USED FOR UNKNOWN INDICATION

REACTIONS (3)
  - BLOOD GLUCOSE INCREASED [None]
  - GLYCOSYLATED HAEMOGLOBIN INCREASED [None]
  - INSULIN C-PEPTIDE INCREASED [None]
